FAERS Safety Report 6960733-X (Version None)
Quarter: 2010Q3

REPORT INFORMATION
  Report Type: 
  Country: None (occurrence: None)
  Receive Date: 20100901
  Receipt Date: 20100820
  Transmission Date: 20110219
  Serious: Yes (Other)
  Sender: FDA-Public Use
  Company Number: ES-PFIZER INC-2010105657

PATIENT
  Age: 74 Year
  Sex: Male

DRUGS (1)
  1. VFEND [Suspect]
     Indication: GASTROINTESTINAL FUNGAL INFECTION
     Dosage: 200 MG, 1X/DAY
     Route: 048
     Dates: start: 20100628, end: 20100712

REACTIONS (3)
  - COORDINATION ABNORMAL [None]
  - GAIT DISTURBANCE [None]
  - TREMOR [None]
